FAERS Safety Report 18374153 (Version 11)
Quarter: 2022Q1

REPORT INFORMATION
  Report Type: Spontaneous
  Country: CA (occurrence: CA)
  Receive Date: 20201013
  Receipt Date: 20220310
  Transmission Date: 20220423
  Serious: Yes (Hospitalization, Other)
  Sender: FDA-Public Use
  Company Number: CA-CELLTRION INC.-2017CA011298

PATIENT

DRUGS (21)
  1. INFLECTRA [Suspect]
     Active Substance: INFLIXIMAB-DYYB
     Indication: Colitis ulcerative
     Dosage: 400 MG, AT 2, 6, THEN EVERY 8 WEEKS
     Route: 042
     Dates: start: 20170726
  2. INFLECTRA [Suspect]
     Active Substance: INFLIXIMAB-DYYB
     Dosage: UNK
     Dates: start: 20171030
  3. INFLECTRA [Suspect]
     Active Substance: INFLIXIMAB-DYYB
     Dosage: 400 MG AT 2, 6, THEN EVERY 8 WEEKS
     Route: 042
     Dates: start: 20180109
  4. INFLECTRA [Suspect]
     Active Substance: INFLIXIMAB-DYYB
     Dosage: 400 MG AT 2, 6, THEN EVERY 8 WEEKS
     Route: 042
     Dates: start: 20180306
  5. INFLECTRA [Suspect]
     Active Substance: INFLIXIMAB-DYYB
     Dosage: 7.5 MG/KG, (612 MG) EVERY 8 WEEKS
     Route: 042
     Dates: start: 20180514
  6. INFLECTRA [Suspect]
     Active Substance: INFLIXIMAB-DYYB
     Dosage: 7.5 MG/KG (612 MG) EVERY 8 WEEKS
     Route: 042
     Dates: start: 20180709
  7. INFLECTRA [Suspect]
     Active Substance: INFLIXIMAB-DYYB
     Dosage: 7.5 MG/KG, (612 MG) EVERY 8 WEEKS
     Route: 042
     Dates: start: 20180917
  8. INFLECTRA [Suspect]
     Active Substance: INFLIXIMAB-DYYB
     Dosage: 7.5 MG/KG, EVERY 8 WEEKS
     Route: 042
     Dates: start: 20181115
  9. INFLECTRA [Suspect]
     Active Substance: INFLIXIMAB-DYYB
     Dosage: 7.5 MG/KG, EVERY 8 WEEKS
     Route: 042
     Dates: start: 20190502
  10. INFLECTRA [Suspect]
     Active Substance: INFLIXIMAB-DYYB
     Dosage: 7.5 MG/KG, EVERY 8 WEEKS
     Route: 042
     Dates: start: 20190627
  11. INFLECTRA [Suspect]
     Active Substance: INFLIXIMAB-DYYB
     Dosage: 7.5 MG/KG, EVERY 8 WEEKS
     Route: 042
     Dates: start: 20191016
  12. INFLECTRA [Suspect]
     Active Substance: INFLIXIMAB-DYYB
     Dosage: 10 MG/KG ( EVERY 8 WEEKS)
     Route: 042
     Dates: start: 20191211
  13. INFLECTRA [Suspect]
     Active Substance: INFLIXIMAB-DYYB
     Dosage: 10 MG/KG ( EVERY 8 WEEKS)
     Route: 042
     Dates: start: 20200525
  14. INFLECTRA [Suspect]
     Active Substance: INFLIXIMAB-DYYB
     Dosage: 10 MG/KG  ( EVERY 8 WEEKS)
     Route: 042
     Dates: start: 20200720
  15. INFLECTRA [Suspect]
     Active Substance: INFLIXIMAB-DYYB
     Dosage: 10 MG/KG ( EVERY 8 WEEKS)
     Route: 042
     Dates: start: 20200910
  16. CALCIUM [Concomitant]
     Active Substance: CALCIUM
     Dosage: UNK
     Route: 065
     Dates: start: 201707
  17. FOLIC ACID [Concomitant]
     Active Substance: FOLIC ACID
     Dosage: UNK
     Dates: start: 201707
  18. METHOTREXATE [Concomitant]
     Active Substance: METHOTREXATE
     Dosage: UNK
     Dates: start: 201707, end: 201901
  19. PREDNISONE [Concomitant]
     Active Substance: PREDNISONE
     Dosage: UNK
     Dates: start: 201707, end: 201708
  20. PREDNISONE [Concomitant]
     Active Substance: PREDNISONE
     Dosage: UNK
  21. TYLENOL [Concomitant]
     Active Substance: ACETAMINOPHEN
     Dosage: UNK

REACTIONS (9)
  - Condition aggravated [Recovering/Resolving]
  - Meniscus injury [Unknown]
  - Body temperature decreased [Unknown]
  - Heart rate decreased [Unknown]
  - Blood pressure diastolic increased [Unknown]
  - Hypersensitivity [Unknown]
  - Inappropriate schedule of product administration [Unknown]
  - Off label use [Unknown]
  - Intentional product use issue [Unknown]

NARRATIVE: CASE EVENT DATE: 20180514
